FAERS Safety Report 7386291-6 (Version None)
Quarter: 2011Q1

REPORT INFORMATION
  Report Type: 
  Country: None (occurrence: None)
  Receive Date: 20110331
  Receipt Date: 20110317
  Transmission Date: 20110831
  Serious: Yes (Other)
  Sender: FDA-Public Use
  Company Number: PHHY2011US18937

PATIENT
  Sex: Female

DRUGS (7)
  1. NORVASC [Suspect]
  2. LISINOPRIL [Suspect]
  3. JANUMET [Concomitant]
     Dosage: 50/1000 MG, UNK
  4. DIOVAN [Suspect]
     Dosage: 320 MG, QD
  5. MULTI-VITAMIN [Concomitant]
  6. AUGMENTIN [Concomitant]
  7. KLONOPIN [Concomitant]
     Dosage: 1 TO 3, DAILY

REACTIONS (3)
  - DRUG HYPERSENSITIVITY [None]
  - HYPERTENSION [None]
  - MALAISE [None]
